FAERS Safety Report 8131134-6 (Version None)
Quarter: 2012Q1

REPORT INFORMATION
  Report Type: 
  Country: None (occurrence: None)
  Receive Date: 20120209
  Receipt Date: 20120209
  Transmission Date: 20120608
  Serious: Yes (Other)
  Sender: FDA-Public Use
  Company Number: None

PATIENT
  Sex: Male

DRUGS (8)
  1. NIZORAL [Concomitant]
  2. BACLOFEN [Concomitant]
  3. PROCTOZONE-HC [Concomitant]
  4. AMPYRA [Suspect]
     Indication: MULTIPLE SCLEROSIS
     Dosage: AMPYRA 10MG Q12HOURS ORAL
     Route: 048
     Dates: start: 20100601, end: 20120131
  5. TIZANIDINE HCL [Concomitant]
  6. SIMVASTATIN [Concomitant]
  7. DOXAZOSIN [Concomitant]
  8. MYCOLOG-II [Concomitant]

REACTIONS (4)
  - CONVULSION [None]
  - URINARY TRACT INFECTION [None]
  - SPEECH DISORDER [None]
  - FEELING ABNORMAL [None]
